FAERS Safety Report 5843177-3 (Version None)
Quarter: 2008Q3

REPORT INFORMATION
  Report Type: 
  Country: None (occurrence: None)
  Receive Date: 20080813
  Receipt Date: 20080731
  Transmission Date: 20090109
  Serious: Yes (Other)
  Sender: FDA-Public Use
  Company Number: PHEH2008US04490

PATIENT
  Sex: Female

DRUGS (28)
  1. GLEEVEC [Suspect]
     Indication: CHRONIC MYELOID LEUKAEMIA
     Dosage: 400 MG, QD
     Route: 048
     Dates: start: 20080404, end: 20080418
  2. GLEEVEC [Interacting]
     Dosage: 400 MG, QOD
     Route: 048
     Dates: start: 20080421
  3. GLEEVEC [Interacting]
     Dosage: 200 MG, QD
     Route: 048
     Dates: start: 20080425
  4. GLEEVEC [Interacting]
     Dosage: 400 MG, QD
     Route: 048
     Dates: start: 20080512
  5. TYLENOL (CAPLET) [Interacting]
     Indication: PAIN IN EXTREMITY
     Dosage: 4 TO 6 TIMES/DAY
     Route: 048
  6. ASPIRIN [Concomitant]
     Dosage: UNK
  7. LODINE [Concomitant]
     Indication: BACK PAIN
  8. ALLOPURINOL [Concomitant]
  9. LEVOTHYROXINE SODIUM [Concomitant]
  10. NIFEDIPINE [Concomitant]
  11. ACTONEL [Concomitant]
  12. METFORMIN HCL [Concomitant]
  13. ADVAIR DISKUS 100/50 [Concomitant]
  14. ALBUTEROL [Concomitant]
  15. ASTELIN [Concomitant]
  16. NASACORT [Concomitant]
  17. SINGULAIR [Concomitant]
  18. ZYRTEC [Concomitant]
  19. MAGNESIUM SULFATE [Concomitant]
  20. VALIUM [Concomitant]
     Indication: MUSCLE SPASMS
  21. NEXIUM [Concomitant]
  22. DETROL [Concomitant]
  23. BENADRYL ^PFIZER WARNER-LAMBERT^ [Concomitant]
  24. VITAMIN TAB [Concomitant]
  25. MINERALS NOS [Concomitant]
  26. COENZYME Q10 [Concomitant]
  27. GLUCOSAMINE [Concomitant]
  28. CHONDROITIN A [Concomitant]

REACTIONS (28)
  - ARTHRALGIA [None]
  - BLOOD GLUCOSE INCREASED [None]
  - BLOOD LACTATE DEHYDROGENASE INCREASED [None]
  - CATARACT OPERATION [None]
  - CHEST DISCOMFORT [None]
  - CHILLS [None]
  - DEPRESSION [None]
  - DISCOMFORT [None]
  - DRUG INTERACTION [None]
  - DYSPNOEA [None]
  - EYE PAIN [None]
  - MALAISE [None]
  - MUSCLE SPASMS [None]
  - NASAL CONGESTION [None]
  - OEDEMA PERIPHERAL [None]
  - PAIN [None]
  - PERIORBITAL OEDEMA [None]
  - PRODUCTIVE COUGH [None]
  - PYREXIA [None]
  - RETINAL HAEMORRHAGE [None]
  - RHINORRHOEA [None]
  - SINUS HEADACHE [None]
  - SINUSITIS [None]
  - SLEEP DISORDER [None]
  - THROMBOCYTHAEMIA [None]
  - VAGINAL DISORDER [None]
  - VISUAL IMPAIRMENT [None]
  - WEIGHT DECREASED [None]
